FAERS Safety Report 9137090 (Version 1)
Quarter: 2013Q1

REPORT INFORMATION
  Report Type: Spontaneous
  Country: JP (occurrence: JP)
  Receive Date: 20130304
  Receipt Date: 20130304
  Transmission Date: 20140127
  Serious: Yes (Hospitalization, Other)
  Sender: FDA-Public Use
  Company Number: PHHY2013JP020759

PATIENT
  Sex: Female

DRUGS (2)
  1. NEORAL [Suspect]
     Indication: SYSTEMIC LUPUS ERYTHEMATOSUS
     Route: 048
  2. CORTICOSTEROIDS [Concomitant]

REACTIONS (7)
  - Urine output decreased [Unknown]
  - Dyspnoea [Unknown]
  - Gait disturbance [Unknown]
  - Oedema [Unknown]
  - Weight increased [Unknown]
  - Swelling face [Unknown]
  - Skin tightness [Unknown]
